FAERS Safety Report 20468298 (Version 2)
Quarter: 2022Q1

REPORT INFORMATION
  Report Type: Spontaneous
  Country: US (occurrence: US)
  Receive Date: 20220214
  Receipt Date: 20220214
  Transmission Date: 20220423
  Serious: Yes (Other)
  Sender: FDA-Public Use
  Company Number: US-CELGENE-USA-20220203091

PATIENT
  Sex: Male
  Weight: 107.60 kg

DRUGS (2)
  1. REVLIMID [Suspect]
     Active Substance: LENALIDOMIDE
     Indication: Plasma cell myeloma
     Dosage: 25 MILLIGRAM
     Route: 048
     Dates: start: 20211111
  2. GLEEVEC [Concomitant]
     Active Substance: IMATINIB MESYLATE
     Indication: Product used for unknown indication
     Route: 065

REACTIONS (6)
  - Ascites [Unknown]
  - Pulmonary oedema [Unknown]
  - Cardiac valve disease [Unknown]
  - Oedema peripheral [Unknown]
  - Infection [Unknown]
  - Dyspnoea [Unknown]
